FAERS Safety Report 21974006 (Version 1)
Quarter: 2023Q1

REPORT INFORMATION
  Report Type: Spontaneous
  Country: US (occurrence: None)
  Receive Date: 20230208
  Receipt Date: 20230208
  Transmission Date: 20230418
  Serious: Yes (Disabling)
  Sender: FDA-Public Use
  Company Number: None

PATIENT
  Age: 39 Year
  Sex: Female
  Weight: 99 kg

DRUGS (1)
  1. ARTIFICIAL TEARS LUBRICANT EYE DROPS (CARBOXYMETHYLCELLULOSE SODIUM) [Suspect]
     Active Substance: CARBOXYMETHYLCELLULOSE SODIUM
     Indication: Dry eye

REACTIONS (7)
  - Middle insomnia [None]
  - Ocular hyperaemia [None]
  - Periorbital pain [None]
  - Blindness [None]
  - Vision blurred [None]
  - Impaired work ability [None]
  - Impaired driving ability [None]

NARRATIVE: CASE EVENT DATE: 20221129
